FAERS Safety Report 22149888 (Version 2)
Quarter: 2023Q2

REPORT INFORMATION
  Report Type: Spontaneous
  Country: RS (occurrence: RS)
  Receive Date: 20230329
  Receipt Date: 20230412
  Transmission Date: 20230721
  Serious: Yes (Other)
  Sender: FDA-Public Use
  Company Number: RS-AMGEN-SRBSP2023051118

PATIENT
  Age: 56 Year
  Sex: Female

DRUGS (8)
  1. VECTIBIX [Suspect]
     Active Substance: PANITUMUMAB
     Indication: Metastases to liver
     Dosage: 6 MILLIGRAM/KILOGRAM ON THE FIRST DAY, Q2WK (BIWEEKLY)
     Route: 065
  2. VECTIBIX [Suspect]
     Active Substance: PANITUMUMAB
     Indication: Adenocarcinoma of colon
  3. OXALIPLATIN [Suspect]
     Active Substance: OXALIPLATIN
     Indication: Metastases to liver
     Dosage: 85 MILLIGRAM/SQ. METER, Q2WK ON THE FIRST DAY
     Route: 065
  4. OXALIPLATIN [Suspect]
     Active Substance: OXALIPLATIN
     Indication: Adenocarcinoma of colon
  5. LEUCOVORIN [Suspect]
     Active Substance: LEUCOVORIN
     Indication: Metastases to liver
     Dosage: 200 MILLIGRAM/SQ. METER, Q2WK ON THE FIRST AND SECOND DAY
     Route: 065
  6. LEUCOVORIN [Suspect]
     Active Substance: LEUCOVORIN
     Indication: Adenocarcinoma of colon
  7. FLUOROURACIL SODIUM [Suspect]
     Active Substance: FLUOROURACIL SODIUM
     Indication: Metastases to liver
     Dosage: 400 MILLIGRAM/SQ. METER, Q2WK ON THE FIRST AND SECOND DAY
     Route: 042
  8. FLUOROURACIL SODIUM [Suspect]
     Active Substance: FLUOROURACIL SODIUM
     Indication: Adenocarcinoma of colon
     Dosage: 600 MILLIGRAM/SQ. METER, Q2WK ON THE FIRST AND SECOND DAY
     Route: 042

REACTIONS (4)
  - Metastases to liver [Recovered/Resolved]
  - Tumour marker decreased [Recovered/Resolved]
  - Therapy partial responder [Unknown]
  - Rash [Recovering/Resolving]
